FAERS Safety Report 5401071-6 (Version None)
Quarter: 2007Q3

REPORT INFORMATION
  Report Type: 
  Country: None (occurrence: None)
  Receive Date: 20070726
  Receipt Date: 20070716
  Transmission Date: 20080115
  Serious: Yes (Hospitalization)
  Sender: FDA-Public Use
  Company Number: 2007-03338

PATIENT
  Age: 4 Year
  Sex: Male

DRUGS (3)
  1. FENTANYL CITRATE [Suspect]
     Indication: SEDATION
     Dosage: 8 UG/KG, Q H FOR 3 DAYS, INTRAVENOUS
     Route: 042
     Dates: start: 20060101, end: 20060101
  2. MORPHINE SULFATE [Suspect]
     Indication: SEDATION
     Dosage: 0.8 MG/KG, Q H FO 3 DAYS, INTRAVENOUS
     Route: 042
     Dates: start: 20060101, end: 20060101
  3. MIDAZOLAM HCL [Suspect]
     Indication: SEDATION
     Dosage: 0.5 MG/KG, Q H FOR 3 DAYS, INTRAVENOUS
     Route: 042

REACTIONS (4)
  - AUTOMATISM [None]
  - DRUG WITHDRAWAL SYNDROME [None]
  - DYSKINESIA [None]
  - STATUS EPILEPTICUS [None]
